FAERS Safety Report 6756978-4 (Version None)
Quarter: 2010Q2

REPORT INFORMATION
  Report Type: 
  Country: None (occurrence: None)
  Receive Date: 20100603
  Receipt Date: 20100603
  Transmission Date: 20101027
  Serious: Yes (Death)
  Sender: FDA-Public Use
  Company Number: None

PATIENT
  Age: 50 Year
  Sex: Male
  Weight: 90.7194 kg

DRUGS (1)
  1. HCG FEMALE GROWTH HORMONE [Suspect]
     Indication: WEIGHT DECREASED
     Dosage: INJECTIONS 5 TIMES PER WEEK UNK

REACTIONS (3)
  - ABNORMAL LOSS OF WEIGHT [None]
  - COMPLETED SUICIDE [None]
  - PERSONALITY CHANGE [None]
